FAERS Safety Report 8580293-X (Version None)
Quarter: 2012Q3

REPORT INFORMATION
  Report Type: 
  Country: None (occurrence: None)
  Receive Date: 20120808
  Receipt Date: 20120802
  Transmission Date: 20120928
  Serious: Yes (Hospitalization)
  Sender: FDA-Public Use
  Company Number: PHHY2012GB061971

PATIENT
  Age: 69 Year
  Sex: Female
  Weight: 64 kg

DRUGS (12)
  1. BENDROFLUMETHIAZIDE [Concomitant]
     Dates: start: 20050402
  2. RAMIPRIL [Concomitant]
     Dates: start: 20080201
  3. MIRTAZAPINE [Suspect]
     Dates: start: 20120501
  4. ACRIVASTINE [Concomitant]
     Dates: start: 20110728
  5. BECONASE [Concomitant]
     Dates: start: 20071120
  6. LANSOPRAZOLE [Concomitant]
     Dates: start: 20080627
  7. PROPRANOLOL [Suspect]
     Dosage: 10 MG
     Dates: start: 20120501
  8. ATORVASTATIN [Concomitant]
     Dates: start: 20031114
  9. METOCLOPRAMIDE [Concomitant]
     Dates: start: 20110806, end: 20110901
  10. FENOFIBRATE [Concomitant]
     Dates: start: 20030520
  11. TETRABENAZINE [Concomitant]
     Dates: start: 20111128, end: 20120320
  12. LORAZEPAM [Concomitant]
     Dates: start: 20120329, end: 20120523

REACTIONS (2)
  - MUSCLE CONTRACTIONS INVOLUNTARY [None]
  - EATING DISORDER [None]
